FAERS Safety Report 11221769 (Version 3)
Quarter: 2015Q4

REPORT INFORMATION
  Report Type: Spontaneous
  Country: US (occurrence: US)
  Receive Date: 20150626
  Receipt Date: 20151110
  Transmission Date: 20160304
  Serious: Yes (Other)
  Sender: FDA-Public Use
  Company Number: US-PFIZER INC-2015209732

PATIENT
  Age: 86 Year
  Sex: Female
  Weight: 46 kg

DRUGS (1)
  1. CELEBREX [Suspect]
     Active Substance: CELECOXIB
     Indication: ARTHRITIS
     Dosage: 200 MG, 1X/DAY
     Route: 048

REACTIONS (4)
  - Arthropathy [Unknown]
  - Musculoskeletal stiffness [Unknown]
  - Back disorder [Unknown]
  - Blood pressure abnormal [Recovering/Resolving]
